FAERS Safety Report 9212048 (Version 3)
Quarter: 2014Q4

REPORT INFORMATION
  Report Type: Spontaneous
  Country: US (occurrence: US)
  Receive Date: 20130404
  Receipt Date: 20141021
  Transmission Date: 20150529
  Serious: Yes (Other)
  Sender: FDA-Public Use
  Company Number: US-AMGEN-USASP2013020776

PATIENT
  Age: 55 Year
  Sex: Female
  Weight: 74.83 kg

DRUGS (8)
  1. DELTASONE                          /00016001/ [Concomitant]
     Indication: INFLAMMATION
     Dosage: 5 MG, BID
     Route: 048
  2. ENBREL [Suspect]
     Active Substance: ETANERCEPT
     Indication: PSORIATIC ARTHROPATHY
     Dosage: 50 MG, QWK
     Route: 058
     Dates: start: 20101015, end: 201406
  3. ATARAX [Concomitant]
     Active Substance: HYDROXYZINE\HYDROXYZINE HYDROCHLORIDE
     Indication: URTICARIA
     Dosage: 25 MG, UNK
     Route: 048
  4. NAPROSYN [Concomitant]
     Active Substance: NAPROXEN
     Indication: INFLAMMATION
     Dosage: 500 MG, UNK
     Route: 048
  5. MOTRIN [Concomitant]
     Active Substance: IBUPROFEN
     Indication: INFLAMMATION
     Dosage: 800 MG, UNK
     Route: 048
  6. ATORVASTATIN [Concomitant]
     Active Substance: ATORVASTATIN
     Indication: BLOOD CHOLESTEROL
     Dosage: 10 MG, UNK
     Route: 048
  7. TEMOVATE [Concomitant]
     Active Substance: CLOBETASOL PROPIONATE
     Indication: RASH
     Dosage: UNK
     Route: 061
  8. TOPICORT                           /00028604/ [Concomitant]
     Dosage: UNK
     Route: 061

REACTIONS (20)
  - Erythema [Not Recovered/Not Resolved]
  - Swelling [Not Recovered/Not Resolved]
  - Ulcer [Not Recovered/Not Resolved]
  - Secretion discharge [Not Recovered/Not Resolved]
  - Scar [Recovered/Resolved]
  - Sciatica [Not Recovered/Not Resolved]
  - Pruritus [Recovered/Resolved]
  - Human papilloma virus test positive [Not Recovered/Not Resolved]
  - Joint stiffness [Not Recovered/Not Resolved]
  - Rash erythematous [Recovered/Resolved]
  - Feeling hot [Recovered/Resolved]
  - Chest pain [Not Recovered/Not Resolved]
  - Rash pruritic [Recovered/Resolved]
  - Skin ulcer [Recovered/Resolved]
  - Inflammation [Not Recovered/Not Resolved]
  - Injection site pain [Recovered/Resolved]
  - Skin disorder [Recovered/Resolved]
  - Pain [Not Recovered/Not Resolved]
  - Musculoskeletal stiffness [Not Recovered/Not Resolved]
  - Arthralgia [Not Recovered/Not Resolved]

NARRATIVE: CASE EVENT DATE: 20101015
